FAERS Safety Report 20149834 (Version 4)
Quarter: 2022Q1

REPORT INFORMATION
  Report Type: Report from Study
  Country: US (occurrence: US)
  Receive Date: 20211206
  Receipt Date: 20220329
  Transmission Date: 20220423
  Serious: No
  Sender: FDA-Public Use
  Company Number: US-NOVARTISTESTPH-NVSC2021US276188

PATIENT
  Sex: Female

DRUGS (2)
  1. KESIMPTA [Suspect]
     Active Substance: OFATUMUMAB
     Indication: Relapsing multiple sclerosis
     Dosage: 20 MG, QMO (ONCE A WEEK FOR A 3 WEEKS, THEN A WEEK BREAK. THEN ONCE A MONTH THEREAFTER)
     Route: 058
     Dates: start: 20211010
  2. KESIMPTA [Suspect]
     Active Substance: OFATUMUMAB
     Indication: Multiple sclerosis
     Dosage: 20 MG, QMO (BENEATH SKIN VIA INJECTION)
     Route: 058

REACTIONS (8)
  - Vertigo [Recovered/Resolved]
  - Gait disturbance [Recovered/Resolved]
  - Tremor [Recovered/Resolved]
  - Asthenia [Unknown]
  - Arthralgia [Unknown]
  - Pyrexia [Recovered/Resolved]
  - Fatigue [Unknown]
  - Inappropriate schedule of product administration [Not Recovered/Not Resolved]
